FAERS Safety Report 20709210 (Version 1)
Quarter: 2022Q2

REPORT INFORMATION
  Report Type: Spontaneous
  Country: IT (occurrence: IT)
  Receive Date: 20220414
  Receipt Date: 20220414
  Transmission Date: 20220720
  Serious: Yes (Life-Threatening, Hospitalization)
  Sender: FDA-Public Use
  Company Number: IT-MYLANLABS-2022M1026668

PATIENT
  Age: 71 Year
  Sex: Male

DRUGS (7)
  1. PREDNISONE [Suspect]
     Active Substance: PREDNISONE
     Indication: Hepatitis
     Dosage: UNK
     Route: 065
  2. PREDNISONE [Suspect]
     Active Substance: PREDNISONE
     Dosage: DOSE REDUCED
     Route: 065
  3. PREDNISOLONE [Suspect]
     Active Substance: PREDNISOLONE
     Indication: Hepatitis
     Dosage: 2 MILLIGRAM/KILOGRAM
     Route: 042
  4. PREDNISOLONE [Suspect]
     Active Substance: PREDNISOLONE
     Dosage: DOSE REDUCED
     Route: 042
  5. MYCOPHENOLATE MOFETIL [Concomitant]
     Active Substance: MYCOPHENOLATE MOFETIL
     Indication: Vanishing bile duct syndrome
     Dosage: 1 GRAM, QD
     Route: 065
  6. URSODIOL [Concomitant]
     Active Substance: URSODIOL
     Indication: Vanishing bile duct syndrome
     Dosage: 600 MILLIGRAM, QD
     Route: 048
  7. PEMBROLIZUMAB [Concomitant]
     Active Substance: PEMBROLIZUMAB
     Indication: Lung adenocarcinoma
     Dosage: UNK
     Route: 065

REACTIONS (1)
  - Drug resistance [Unknown]
